FAERS Safety Report 8916410 (Version 2)
Quarter: 2012Q4

REPORT INFORMATION
  Report Type: 
  Country: US (occurrence: US)
  Receive Date: 20121120
  Receipt Date: 20121206
  Transmission Date: 20130627
  Serious: No
  Sender: FDA-Public Use
  Company Number: US-PFIZER INC-2012286997

PATIENT

DRUGS (1)
  1. DIFLUCAN [Suspect]
     Dosage: UNK
     Route: 048

REACTIONS (6)
  - Drug hypersensitivity [Unknown]
  - Rash pruritic [Unknown]
  - Skin swelling [Unknown]
  - Skin exfoliation [Unknown]
  - Urticaria [Unknown]
  - Myalgia [Unknown]
